FAERS Safety Report 22139294 (Version 8)
Quarter: 2023Q2

REPORT INFORMATION
  Report Type: Report from Study
  Country: ES (occurrence: ES)
  Receive Date: 20230327
  Receipt Date: 20230523
  Transmission Date: 20230722
  Serious: Yes (Hospitalization, Other)
  Sender: FDA-Public Use
  Company Number: ES-ABBVIE-4314468

PATIENT
  Sex: Male

DRUGS (10)
  1. CARBIDOPA\LEVODOPA [Suspect]
     Active Substance: CARBIDOPA\LEVODOPA
     Indication: Parkinson^s disease
     Dosage: DOSE UPDATED
     Route: 050
     Dates: start: 20230326, end: 202304
  2. CARBIDOPA\LEVODOPA [Suspect]
     Active Substance: CARBIDOPA\LEVODOPA
     Dosage: CONTINUOUS DOSE DECREASED
     Route: 050
     Dates: start: 202304, end: 202305
  3. CARBIDOPA\LEVODOPA [Suspect]
     Active Substance: CARBIDOPA\LEVODOPA
     Dosage: DOSE MODIFIED
     Route: 050
     Dates: start: 20200206, end: 202302
  4. CARBIDOPA\LEVODOPA [Suspect]
     Active Substance: CARBIDOPA\LEVODOPA
     Dosage: DECREASE THE CONTINUOUS DOSE BY 0.3 ML/H
     Route: 050
     Dates: start: 202302, end: 202302
  5. CARBIDOPA\LEVODOPA [Suspect]
     Active Substance: CARBIDOPA\LEVODOPA
     Dosage: DOSE INCREASED
     Route: 050
     Dates: start: 202302, end: 202302
  6. CARBIDOPA\LEVODOPA [Suspect]
     Active Substance: CARBIDOPA\LEVODOPA
     Dosage: CONTINUOUS DOSE DECREASED BY 0,2 ML/H
     Route: 050
     Dates: start: 202302, end: 202303
  7. CARBIDOPA\LEVODOPA [Suspect]
     Active Substance: CARBIDOPA\LEVODOPA
     Dosage: CONTINUOUS DOSE IS DECREASED
     Route: 050
     Dates: start: 202305
  8. NEUPRO [Suspect]
     Active Substance: ROTIGOTINE
     Indication: Product used for unknown indication
     Route: 062
     Dates: start: 20230413, end: 20230413
  9. NEUPRO [Suspect]
     Active Substance: ROTIGOTINE
     Indication: Product used for unknown indication
     Route: 062
     Dates: start: 20230413, end: 20230413
  10. NEUPRO [Suspect]
     Active Substance: ROTIGOTINE
     Indication: Product used for unknown indication
     Route: 062

REACTIONS (41)
  - Chapped lips [Recovered/Resolved]
  - Blood disorder [Unknown]
  - Foot deformity [Recovered/Resolved]
  - Gait disturbance [Not Recovered/Not Resolved]
  - Movement disorder [Recovered/Resolved]
  - Drowning [Recovered/Resolved]
  - Mobility decreased [Not Recovered/Not Resolved]
  - Anxiety [Recovered/Resolved]
  - Fall [Recovered/Resolved]
  - Anxiety [Unknown]
  - Fall [Recovered/Resolved]
  - Unevaluable event [Unknown]
  - Contusion [Not Recovered/Not Resolved]
  - Gait disturbance [Recovered/Resolved]
  - Pulmonary oedema [Recovered/Resolved]
  - Malaise [Not Recovered/Not Resolved]
  - Fear of falling [Recovered/Resolved]
  - Fall [Recovered/Resolved]
  - Joint range of motion decreased [Recovered/Resolved]
  - Balance disorder [Unknown]
  - Wound haemorrhage [Not Recovered/Not Resolved]
  - Musculoskeletal disorder [Not Recovered/Not Resolved]
  - Respiratory tract infection [Unknown]
  - Gait inability [Unknown]
  - Mobility decreased [Recovered/Resolved]
  - Skin wound [Recovered/Resolved]
  - Musculoskeletal stiffness [Recovered/Resolved]
  - Emotional distress [Recovered/Resolved]
  - Implantable defibrillator insertion [Unknown]
  - Therapeutic product effect incomplete [Not Recovered/Not Resolved]
  - Fall [Recovered/Resolved]
  - Gait disturbance [Recovered/Resolved]
  - Balance disorder [Recovered/Resolved]
  - Dyskinesia [Recovered/Resolved]
  - Mobility decreased [Not Recovered/Not Resolved]
  - Malaise [Recovered/Resolved]
  - Fall [Recovered/Resolved]
  - Mood altered [Unknown]
  - Skin discolouration [Unknown]
  - Parkinson^s disease [Unknown]
  - Disease progression [Unknown]

NARRATIVE: CASE EVENT DATE: 20200101
